FAERS Safety Report 10331703 (Version 1)
Quarter: 2014Q3

REPORT INFORMATION
  Report Type: Spontaneous
  Country: US (occurrence: US)
  Receive Date: 20140722
  Receipt Date: 20140722
  Transmission Date: 20150326
  Serious: No
  Sender: FDA-Public Use
  Company Number: US-ASTRAZENECA-2014SE30202

PATIENT
  Age: 50 Year
  Sex: Female
  Weight: 112 kg

DRUGS (9)
  1. SAPHRIS [Suspect]
     Active Substance: ASENAPINE MALEATE
     Indication: SLEEP DISORDER
     Route: 048
  2. INFLAMMATORY PILL [Concomitant]
  3. TEMAZEPAM. [Concomitant]
     Active Substance: TEMAZEPAM
     Indication: INSOMNIA
     Route: 048
     Dates: start: 2002
  4. NEXIUM [Suspect]
     Active Substance: ESOMEPRAZOLE MAGNESIUM
     Indication: REGURGITATION
     Route: 048
     Dates: start: 20140410
  5. NEXIUM [Suspect]
     Active Substance: ESOMEPRAZOLE MAGNESIUM
     Indication: LARYNGEAL OEDEMA
     Route: 048
     Dates: start: 20140410
  6. NEXIUM [Suspect]
     Active Substance: ESOMEPRAZOLE MAGNESIUM
     Indication: DYSPHONIA
     Route: 048
     Dates: start: 20140410
  7. SEROQUEL [Suspect]
     Active Substance: QUETIAPINE FUMARATE
     Indication: SCHIZOPHRENIA
     Route: 048
     Dates: start: 2003, end: 2013
  8. SEROQUEL [Suspect]
     Active Substance: QUETIAPINE FUMARATE
     Indication: SCHIZOPHRENIA
     Route: 048
     Dates: start: 2013
  9. BENZOTROPAMINE [Concomitant]
     Indication: TARDIVE DYSKINESIA
     Route: 048

REACTIONS (7)
  - Feeling abnormal [Unknown]
  - Temporomandibular joint syndrome [Recovered/Resolved]
  - Overweight [Not Recovered/Not Resolved]
  - Visual impairment [Unknown]
  - Fatigue [Recovered/Resolved]
  - Headache [Not Recovered/Not Resolved]
  - Off label use [Not Recovered/Not Resolved]

NARRATIVE: CASE EVENT DATE: 2003
